FAERS Safety Report 17237504 (Version 2)
Quarter: 2020Q1

REPORT INFORMATION
  Report Type: Spontaneous
  Country: US (occurrence: US)
  Receive Date: 20200106
  Receipt Date: 20200218
  Transmission Date: 20200409
  Serious: Yes (Other)
  Sender: FDA-Public Use
  Company Number: US-PFIZER INC-2020003377

PATIENT

DRUGS (1)
  1. ALPRAZOLAM. [Suspect]
     Active Substance: ALPRAZOLAM
     Dosage: UNK UNK, DAILY

REACTIONS (6)
  - Feeling abnormal [Unknown]
  - Generalised tonic-clonic seizure [Unknown]
  - Hyperhidrosis [Unknown]
  - Euphoric mood [Unknown]
  - Drug ineffective [Unknown]
  - Withdrawal syndrome [Unknown]
